FAERS Safety Report 11199561 (Version 2)
Quarter: 2015Q3

REPORT INFORMATION
  Report Type: Spontaneous
  Country: US (occurrence: US)
  Receive Date: 20150618
  Receipt Date: 20150721
  Transmission Date: 20151125
  Serious: Yes (Life-Threatening, Hospitalization)
  Sender: FDA-Public Use
  Company Number: US-BAYER-2015-351257

PATIENT
  Sex: Female

DRUGS (1)
  1. BAYER GENUINE ASPIRIN [Suspect]
     Active Substance: ASPIRIN
     Indication: MYALGIA
     Dosage: 2 DF, PRN
     Route: 048
     Dates: start: 2006, end: 2006

REACTIONS (5)
  - Haematemesis [Recovered/Resolved]
  - Gastric haemorrhage [Recovered/Resolved]
  - Dyspepsia [Recovered/Resolved]
  - Gastric ulcer haemorrhage [Recovered/Resolved]
  - Medical device pain [Unknown]

NARRATIVE: CASE EVENT DATE: 200604
